FAERS Safety Report 6638033-7 (Version None)
Quarter: 2010Q1

REPORT INFORMATION
  Report Type: 
  Country: None (occurrence: None)
  Receive Date: 20100317
  Receipt Date: 20100304
  Transmission Date: 20100710
  Serious: Yes (Hospitalization, Other)
  Sender: FDA-Public Use
  Company Number: JP-PFIZER INC-2010031612

PATIENT
  Age: 78 Year
  Sex: Male

DRUGS (2)
  1. CELECOX [Suspect]
     Dosage: 200 MG, 1X/DAY
     Route: 048
     Dates: start: 20100216
  2. INSULIN [Concomitant]

REACTIONS (3)
  - BLOOD SODIUM INCREASED [None]
  - LOSS OF CONSCIOUSNESS [None]
  - SOMNOLENCE [None]
